FAERS Safety Report 4914960-3 (Version None)
Quarter: 2006Q1

REPORT INFORMATION
  Report Type: 
  Country: None (occurrence: None)
  Receive Date: 20060215
  Receipt Date: 20060215
  Transmission Date: 20060701
  Serious: Yes (Hospitalization)
  Sender: FDA-Public Use
  Company Number: None

PATIENT

DRUGS (26)
  1. NPH INSULIN [Suspect]
     Indication: DIABETES MELLITUS
  2. 70/30 INSULIN [Suspect]
     Indication: DIABETES MELLITUS
  3. ATROVENT [Concomitant]
  4. VICODIN [Concomitant]
  5. GUAIFENESIN [Concomitant]
  6. ASPIRIN [Concomitant]
  7. AVANDIA [Concomitant]
  8. COLACE [Concomitant]
  9. MELATONIN [Concomitant]
  10. NASONEX [Concomitant]
  11. PLAVIX [Concomitant]
  12. PRILOSEC [Concomitant]
  13. ADVAIR DISKUS 100/50 [Concomitant]
  14. GABAPENTIN [Concomitant]
  15. SPIRONOLACTONE [Concomitant]
  16. ALBUTEROL [Concomitant]
  17. CELLUVISC [Concomitant]
  18. COSOPT [Concomitant]
  19. DOXAZOSIN [Concomitant]
  20. FLOMAX [Concomitant]
  21. LASIX [Concomitant]
  22. NEURONTIN [Concomitant]
  23. MEVACOR [Concomitant]
  24. PROSCAR [Concomitant]
  25. TRAZADONE [Concomitant]
  26. VERAPAMIL [Concomitant]

REACTIONS (4)
  - ASTHENIA [None]
  - HYPOGLYCAEMIA [None]
  - LOSS OF CONSCIOUSNESS [None]
  - MALAISE [None]
